FAERS Safety Report 15700282 (Version 1)
Quarter: 2018Q4

REPORT INFORMATION
  Report Type: Spontaneous
  Country: US (occurrence: US)
  Receive Date: 20181207
  Receipt Date: 20181207
  Transmission Date: 20190205
  Serious: Yes (Other)
  Sender: FDA-Public Use
  Company Number: US-BAUSCH-BL-2018-033228

PATIENT
  Age: 42 Year
  Sex: Female

DRUGS (7)
  1. AMITRIPTYLINE [Suspect]
     Active Substance: AMITRIPTYLINE
     Indication: PANIC DISORDER
  2. MEPROBAMATE. [Suspect]
     Active Substance: MEPROBAMATE
     Indication: MAJOR DEPRESSION
     Route: 065
  3. LORAZEPAM. [Suspect]
     Active Substance: LORAZEPAM
     Indication: PANIC DISORDER
     Dosage: ABUSED
     Route: 065
  4. AMITRIPTYLINE [Suspect]
     Active Substance: AMITRIPTYLINE
     Indication: MAJOR DEPRESSION
     Dosage: EVERY NIGHT AT BEDTIME
     Route: 065
  5. LORAZEPAM. [Suspect]
     Active Substance: LORAZEPAM
     Indication: MAJOR DEPRESSION
     Route: 065
  6. LORAZEPAM. [Suspect]
     Active Substance: LORAZEPAM
     Route: 048
  7. MEPROBAMATE. [Suspect]
     Active Substance: MEPROBAMATE
     Indication: PANIC DISORDER
     Route: 065

REACTIONS (4)
  - Therapy cessation [Recovered/Resolved]
  - Withdrawal catatonia [Recovered/Resolved]
  - Drug abuse [Recovered/Resolved]
  - Echolalia [Unknown]
